FAERS Safety Report 8118020-2 (Version None)
Quarter: 2012Q1

REPORT INFORMATION
  Report Type: 
  Country: None (occurrence: None)
  Receive Date: 20120207
  Receipt Date: 20120131
  Transmission Date: 20120608
  Serious: Yes (Hospitalization)
  Sender: FDA-Public Use
  Company Number: US-GENZYME-THYM-1001692

PATIENT
  Sex: Female
  Weight: 117.9 kg

DRUGS (46)
  1. MEPERIDINE HCL [Concomitant]
     Indication: PRODUCT USED FOR UNKNOWN INDICATION
     Dosage: UNK
     Route: 065
     Dates: start: 20111215, end: 20111221
  2. CLARITIN [Concomitant]
     Indication: PRODUCT USED FOR UNKNOWN INDICATION
     Dosage: 10 MG, ONCE
     Route: 065
     Dates: start: 20111215, end: 20111215
  3. EPINEPHRINE [Concomitant]
     Indication: PRODUCT USED FOR UNKNOWN INDICATION
     Dosage: 0.3 MG, ONCE,PRN
     Route: 065
     Dates: start: 20111215, end: 20111224
  4. LANOXIN [Concomitant]
     Dosage: 0.125 MG, ONCE
     Route: 065
     Dates: start: 20111222, end: 20111222
  5. SOLU-CORTEF [Concomitant]
     Dosage: 100 MG, ONCE, PRN
     Dates: start: 20111223, end: 20111224
  6. REGLAN [Concomitant]
     Indication: PRODUCT USED FOR UNKNOWN INDICATION
     Dosage: 10 MG, QID
     Route: 065
     Dates: start: 20111227, end: 20111227
  7. VORICONAZOLE [Concomitant]
     Indication: PRODUCT USED FOR UNKNOWN INDICATION
     Dosage: 200 MG, BID
     Route: 065
     Dates: start: 20111214, end: 20111218
  8. MEPHYTON [Concomitant]
     Indication: PRODUCT USED FOR UNKNOWN INDICATION
     Dosage: 10 MG, 1/MONTH
     Route: 065
     Dates: start: 20111214, end: 20120116
  9. VERSED [Concomitant]
     Indication: PRODUCT USED FOR UNKNOWN INDICATION
     Dosage: 5 MG, ONCE
     Route: 065
     Dates: start: 20111214, end: 20111214
  10. FENTANYL CITRATE [Concomitant]
     Indication: PRODUCT USED FOR UNKNOWN INDICATION
     Dosage: 1000 MCG, 1/HOUR
     Route: 065
     Dates: start: 20111222, end: 20111225
  11. ZYLOPRIM [Concomitant]
     Indication: PRODUCT USED FOR UNKNOWN INDICATION
     Dosage: 300 MG, QD
     Route: 065
     Dates: start: 20111214, end: 20111215
  12. TACROLIMUS [Concomitant]
     Indication: PRODUCT USED FOR UNKNOWN INDICATION
     Dosage: 0.03 MG/KG, UNK
     Route: 065
     Dates: start: 20111220, end: 20111221
  13. PHENYLEPHRINE [Concomitant]
     Indication: PRODUCT USED FOR UNKNOWN INDICATION
     Dosage: 0.5-3 MCG/KG/MIN
     Route: 065
     Dates: start: 20111222, end: 20111223
  14. THYMOGLOBULIN [Suspect]
     Dosage: 150 MG, UNK
     Route: 042
     Dates: start: 20111219, end: 20111219
  15. CYTOVENE [Concomitant]
     Indication: PRODUCT USED FOR UNKNOWN INDICATION
     Dosage: 500 MG, BID
     Route: 065
     Dates: start: 20111214, end: 20111220
  16. ATIVAN [Concomitant]
     Indication: PRODUCT USED FOR UNKNOWN INDICATION
     Dosage: UNK
     Route: 065
     Dates: start: 20111215, end: 20111224
  17. INSULIN ASPART [Concomitant]
     Dosage: 1-5 UNITS, TID
     Dates: start: 20111218, end: 20111221
  18. MYCOPHENOLATE MEFETIL [Concomitant]
     Indication: PRODUCT USED FOR UNKNOWN INDICATION
     Dosage: 15 MG/KG, UNK
     Route: 065
     Dates: start: 20111219, end: 20111226
  19. APREPITANT [Concomitant]
     Indication: PRODUCT USED FOR UNKNOWN INDICATION
     Dosage: 125 MG, ONCE
     Route: 065
     Dates: start: 20111219, end: 20111219
  20. MAGNESIUM SULFATE [Concomitant]
     Indication: PRODUCT USED FOR UNKNOWN INDICATION
     Dosage: 1 MEQ/HR
     Route: 065
     Dates: start: 20111223, end: 20120110
  21. THYMOGLOBULIN [Suspect]
     Dosage: 150 MG, UNK
     Route: 042
     Dates: start: 20111215, end: 20111215
  22. FLUDARABINE [Concomitant]
     Indication: CORD BLOOD TRANSPLANT THERAPY
     Route: 065
  23. TRAMADOL HCL [Concomitant]
     Indication: PRODUCT USED FOR UNKNOWN INDICATION
     Dosage: 50 MG, Q6H,PRN
     Route: 065
     Dates: start: 20111214, end: 20120104
  24. AVELOX [Concomitant]
     Indication: PRODUCT USED FOR UNKNOWN INDICATION
     Dosage: 400 MG, QD
     Route: 065
     Dates: start: 20111214, end: 20111221
  25. COMPAZINE [Concomitant]
     Indication: PRODUCT USED FOR UNKNOWN INDICATION
     Dosage: 10 MG, Q6H,PRN
     Route: 065
     Dates: start: 20111215, end: 20111224
  26. NEXIUM [Concomitant]
     Indication: PRODUCT USED FOR UNKNOWN INDICATION
     Dosage: 40 MG, QD
     Route: 065
     Dates: start: 20111215, end: 20120106
  27. LANOXIN [Concomitant]
     Indication: PRODUCT USED FOR UNKNOWN INDICATION
     Dosage: 0.25 MG, ONCE
     Route: 065
     Dates: start: 20111222, end: 20111222
  28. SYNTHROID [Concomitant]
     Indication: PRODUCT USED FOR UNKNOWN INDICATION
     Dosage: 137 MCG, UNK
     Route: 065
     Dates: start: 20111214, end: 20111230
  29. NORVASC [Concomitant]
     Indication: PRODUCT USED FOR UNKNOWN INDICATION
     Dosage: 5 MG, QD
     Route: 065
     Dates: start: 20111215, end: 20111216
  30. INSULIN ASPART [Concomitant]
     Indication: PRODUCT USED FOR UNKNOWN INDICATION
     Dosage: 2 UNITS, Q4-6H, PRN1.5 UNK, UNK
     Route: 065
     Dates: start: 20111218, end: 20111218
  31. LIDOCAINE [Concomitant]
     Indication: PRODUCT USED FOR UNKNOWN INDICATION
     Dosage: 5 ML, ONCE
     Route: 065
     Dates: start: 20111221, end: 20111221
  32. DIPHENHYDRAMINE HCL [Concomitant]
     Indication: PRODUCT USED FOR UNKNOWN INDICATION
     Dosage: 50 MG, UNK
     Route: 065
     Dates: start: 20111221, end: 20111221
  33. PROPOFOL [Concomitant]
     Indication: PRODUCT USED FOR UNKNOWN INDICATION
     Dosage: 5-50 MG/KG/MIN.
     Route: 065
     Dates: start: 20111222, end: 20111227
  34. THYMOGLOBULIN [Suspect]
     Indication: CORD BLOOD TRANSPLANT THERAPY
     Dosage: UNK
     Route: 042
  35. ACETAMINOPHEN [Concomitant]
     Indication: PRODUCT USED FOR UNKNOWN INDICATION
     Dosage: 650 MG, PRN
     Route: 065
     Dates: start: 20111215, end: 20111224
  36. PEPCID [Concomitant]
     Indication: PRODUCT USED FOR UNKNOWN INDICATION
     Dosage: 20 MG, BID
     Route: 065
     Dates: start: 20111216, end: 20111221
  37. HEPARIN [Concomitant]
     Indication: PRODUCT USED FOR UNKNOWN INDICATION
     Dosage: 2500 UNITS, ONCE, PRN
     Route: 065
     Dates: start: 20111218, end: 20111221
  38. VASOPRESSIN [Concomitant]
     Indication: PRODUCT USED FOR UNKNOWN INDICATION
     Dosage: 0.04 UNITS/MIN.
     Route: 065
     Dates: start: 20111222, end: 20111222
  39. MELPHALAN HYDROCHLORIDE [Concomitant]
     Indication: CORD BLOOD TRANSPLANT THERAPY
     Route: 065
  40. ATARAX [Concomitant]
     Indication: PRODUCT USED FOR UNKNOWN INDICATION
     Dosage: 25 MG, BID
     Route: 065
     Dates: start: 20111217, end: 20111217
  41. LASIX [Concomitant]
     Indication: PRODUCT USED FOR UNKNOWN INDICATION
     Dosage: 40 MG, QD
     Route: 065
     Dates: start: 20111217, end: 20111219
  42. SOLU-CORTEF [Concomitant]
     Indication: PRODUCT USED FOR UNKNOWN INDICATION
     Dosage: 100 MG, ONCE
     Route: 065
     Dates: start: 20111223, end: 20111223
  43. THYMOGLOBULIN [Suspect]
     Dosage: 150 MG, UNK
     Route: 042
     Dates: start: 20111218, end: 20111218
  44. ONDANSETRON HCL [Concomitant]
     Indication: PRODUCT USED FOR UNKNOWN INDICATION
     Dosage: 16 MG, QD
     Route: 065
     Dates: start: 20111215, end: 20111222
  45. SODIUM CHLORIDE [Concomitant]
     Indication: PRODUCT USED FOR UNKNOWN INDICATION
     Dosage: 0.9%, IV SOLP
     Route: 065
     Dates: start: 20111218, end: 20111220
  46. MYCAMINE [Concomitant]
     Indication: PRODUCT USED FOR UNKNOWN INDICATION
     Dosage: 50 MG, QD
     Route: 065
     Dates: start: 20111218, end: 20120116

REACTIONS (10)
  - SERUM SICKNESS [None]
  - HEPATIC ISCHAEMIA [None]
  - SEPSIS [None]
  - DIARRHOEA [None]
  - RENAL TUBULAR NECROSIS [None]
  - THROMBOCYTOPENIA [None]
  - ATRIAL FIBRILLATION [None]
  - NEUTROPENIA [None]
  - PULMONARY OEDEMA [None]
  - ENTEROCOCCAL BACTERAEMIA [None]
